FAERS Safety Report 5630424-6 (Version None)
Quarter: 2008Q1

REPORT INFORMATION
  Report Type: 
  Country: None (occurrence: None)
  Receive Date: 20080219
  Receipt Date: 20080211
  Transmission Date: 20080703
  Serious: Yes (Death, Other)
  Sender: FDA-Public Use
  Company Number: BR-BRISTOL-MYERS SQUIBB COMPANY-14072227

PATIENT

DRUGS (2)
  1. CISPLATIN [Suspect]
     Indication: BLADDER CANCER
     Dosage: INTRAVENOUS INFUSION IN 500 ML OF NORMAL SALINE OVER 60 MINUTES ON DAY 1 OF THE CYCLE.
     Route: 042
  2. GEMCITABINE [Suspect]
     Dosage: INTRAVENOUS INFUSION IN 250 ML SALINE SOLUTION OVER 30 MINUTES ON DAYS 1 AND 8 OF A 21-DAY CYCLE.
     Route: 042

REACTIONS (20)
  - ALOPECIA [None]
  - ARRHYTHMIA [None]
  - CARDIAC FAILURE [None]
  - FATIGUE [None]
  - HAEMATOTOXICITY [None]
  - HYPERTENSIVE CRISIS [None]
  - INJECTION SITE REACTION [None]
  - MALIGNANT NEOPLASM PROGRESSION [None]
  - MYOCARDIAL INFARCTION [None]
  - NAUSEA [None]
  - NEPHROPATHY TOXIC [None]
  - NEUROPATHY PERIPHERAL [None]
  - NEUTROPENIA [None]
  - PYELONEPHRITIS [None]
  - PYREXIA [None]
  - RASH [None]
  - URINARY FISTULA [None]
  - VOMITING [None]
  - WEIGHT DECREASED [None]
  - WOUND INFECTION [None]
